FAERS Safety Report 6516312-1 (Version None)
Quarter: 2009Q4

REPORT INFORMATION
  Report Type: 
  Country: None (occurrence: None)
  Receive Date: 20091223
  Receipt Date: 20091211
  Transmission Date: 20100525
  Serious: Yes (Hospitalization)
  Sender: FDA-Public Use
  Company Number: JP-BRISTOL-MYERS SQUIBB COMPANY-14901821

PATIENT
  Age: 62 Year
  Sex: Male
  Weight: 38 kg

DRUGS (5)
  1. ERBITUX [Suspect]
     Indication: COLON CANCER
     Dosage: 510MG:27AUG09-27AUG09 320MG:3SEP09-25SEP09
     Route: 042
     Dates: start: 20090827, end: 20090925
  2. IRINOTECAN HCL [Suspect]
     Indication: COLON CANCER
     Route: 042
     Dates: start: 20090827, end: 20090925
  3. CHLOR-TRIMETON [Concomitant]
     Indication: PREMEDICATION
     Route: 042
     Dates: start: 20090827, end: 20090925
  4. DEXART [Concomitant]
     Indication: PREMEDICATION
     Dosage: ALSO TAKEN 3MG
     Route: 042
     Dates: start: 20090827, end: 20090925
  5. KYTRIL [Concomitant]
     Indication: PREMEDICATION
     Route: 042

REACTIONS (1)
  - ILEUS [None]
